FAERS Safety Report 17797579 (Version 1)
Quarter: 2020Q2

REPORT INFORMATION
  Report Type: Spontaneous
  Country: US (occurrence: US)
  Receive Date: 20200515
  Receipt Date: 20200515
  Transmission Date: 20200714
  Serious: No
  Sender: FDA-Public Use
  Company Number: None

PATIENT
  Age: 78 Year
  Sex: Male

DRUGS (1)
  1. DOFETILIDE (DOFETILIDE 250MCG CAP) [Suspect]
     Active Substance: DOFETILIDE
     Indication: ARRHYTHMIA
     Dates: start: 20190808, end: 20190811

REACTIONS (1)
  - Electrocardiogram QT prolonged [None]

NARRATIVE: CASE EVENT DATE: 20190811
